FAERS Safety Report 12446194 (Version 1)
Quarter: 2016Q2

REPORT INFORMATION
  Report Type: Spontaneous
  Country: CA (occurrence: None)
  Receive Date: 20160607
  Receipt Date: 20160607
  Transmission Date: 20160815
  Serious: Yes (Other)
  Sender: FDA-Public Use
  Company Number: None

PATIENT
  Age: 51 Year
  Sex: Female
  Weight: 90.72 kg

DRUGS (4)
  1. SALBUTAMOL [Concomitant]
     Active Substance: ALBUTEROL
  2. KELP [Concomitant]
     Active Substance: KELP
  3. MYDRIACYL [Suspect]
     Active Substance: TROPICAMIDE
     Indication: OPHTHALMOLOGICAL EXAMINATION
  4. LIFE BRAND MULTI [Concomitant]

REACTIONS (7)
  - Sinus headache [None]
  - Nausea [None]
  - Discomfort [None]
  - Eye pain [None]
  - Throat tightness [None]
  - Speech disorder [None]
  - Oropharyngeal pain [None]

NARRATIVE: CASE EVENT DATE: 20160606
